FAERS Safety Report 6347314-6 (Version None)
Quarter: 2009Q3

REPORT INFORMATION
  Report Type: 
  Country: None (occurrence: None)
  Receive Date: 20090910
  Receipt Date: 20090901
  Transmission Date: 20100115
  Serious: Yes (Other)
  Sender: FDA-Public Use
  Company Number: PHHY2009IT36175

PATIENT
  Sex: Female

DRUGS (3)
  1. ZOMETA [Suspect]
     Indication: BREAST CANCER
     Dosage: 4 MG, QMO
     Route: 042
     Dates: start: 20050701, end: 20070731
  2. FEMARA [Concomitant]
     Dosage: 2.5 MG, UNK
     Route: 048
  3. EUTIROX [Concomitant]

REACTIONS (1)
  - OSTEONECROSIS [None]
